FAERS Safety Report 8264700-8 (Version None)
Quarter: 2012Q2

REPORT INFORMATION
  Report Type: 
  Country: None (occurrence: None)
  Receive Date: 20120406
  Receipt Date: 20120328
  Transmission Date: 20120825
  Serious: Yes (Other)
  Sender: FDA-Public Use
  Company Number: DE-JNJFOC-20120108092

PATIENT
  Sex: Male
  Weight: 69 kg

DRUGS (6)
  1. LYRICA [Concomitant]
     Route: 048
     Dates: start: 20111103
  2. DIPYRONE TAB [Concomitant]
     Indication: PAIN
     Route: 048
     Dates: start: 20111225
  3. PANTOPRAZOLE [Concomitant]
     Route: 048
     Dates: start: 20111103
  4. ZYTIGA [Suspect]
     Indication: PROSTATE CANCER
     Route: 048
     Dates: start: 20110922
  5. PREDNISOLONE [Concomitant]
     Indication: PROSTATE CANCER
     Route: 048
     Dates: start: 20110922
  6. FUROSEMIDE [Concomitant]
     Indication: FLUID RETENTION
     Route: 048
     Dates: start: 20111103

REACTIONS (2)
  - HERPES ZOSTER [None]
  - PAIN [None]
